FAERS Safety Report 6077972-5 (Version None)
Quarter: 2009Q1

REPORT INFORMATION
  Report Type: 
  Country: None (occurrence: None)
  Receive Date: 20090213
  Receipt Date: 20090206
  Transmission Date: 20090719
  Serious: Yes (Hospitalization)
  Sender: FDA-Public Use
  Company Number: ZA-ABBOTT-09P-143-0502092-00

PATIENT
  Sex: Male

DRUGS (6)
  1. EPILIM SYRUP [Suspect]
     Indication: EPILEPSY
     Route: 048
  2. EPILIM SYRUP [Suspect]
     Dates: end: 20090101
  3. LAMICTIN [Concomitant]
     Indication: EPILEPSY
     Route: 048
     Dates: start: 20070101
  4. ENABLEX [Concomitant]
     Indication: HYPERTONIC BLADDER
     Route: 048
     Dates: start: 20080101
  5. MACRODANTIN [Concomitant]
     Indication: PROPHYLAXIS
     Route: 048
     Dates: start: 20080101
  6. ELTROXIN [Concomitant]
     Indication: HYPOTHYROIDISM
     Route: 048
     Dates: start: 20060101

REACTIONS (3)
  - HAEMATURIA [None]
  - PURPURA [None]
  - THROMBOCYTOPENIA [None]
